FAERS Safety Report 11824942 (Version 1)
Quarter: 2015Q4

REPORT INFORMATION
  Report Type: Spontaneous
  Country: FR (occurrence: FR)
  Receive Date: 20151210
  Receipt Date: 20151210
  Transmission Date: 20160305
  Serious: Yes (Other)
  Sender: FDA-Public Use
  Company Number: FR-GILEAD-2015-0186165

PATIENT
  Age: 55 Year
  Sex: Male

DRUGS (2)
  1. SOFOSBUVIR [Suspect]
     Active Substance: SOFOSBUVIR
     Indication: HEPATITIS C
     Route: 065
  2. DACLATASVIR. [Concomitant]
     Active Substance: DACLATASVIR
     Indication: HEPATITIS C
     Route: 065

REACTIONS (3)
  - Hepatitis C [Unknown]
  - Hepatic cirrhosis [Unknown]
  - Drug ineffective [Unknown]
